FAERS Safety Report 5460850-X (Version None)
Quarter: 2007Q3

REPORT INFORMATION
  Report Type: 
  Country: None (occurrence: None)
  Receive Date: 20070919
  Receipt Date: 20070918
  Transmission Date: 20080115
  Serious: Yes (Hospitalization)
  Sender: FDA-Public Use
  Company Number: AU-BOEHRINGER INGELHEIM PHARMACEUTICALS, INC.-2004-BP-07422AU

PATIENT
  Sex: Male
  Weight: 75 kg

DRUGS (5)
  1. MICARDIS HCT [Suspect]
     Indication: HYPERTENSION
     Dosage: 80/12.5
     Route: 048
     Dates: start: 20040531, end: 20040819
  2. ATORVASTATIN CALCIUM [Concomitant]
     Indication: HYPERLIPIDAEMIA
     Route: 048
  3. MIXTARD 30/70 (INSULIN) [Concomitant]
     Indication: DIABETES MELLITUS
     Route: 058
  4. POLYTEARS EYE DROPS [Concomitant]
     Route: 031
  5. ELOCON CREAM (MOMETASONE) [Concomitant]
     Route: 061

REACTIONS (5)
  - CHILLS [None]
  - CIRCULATORY COLLAPSE [None]
  - COUGH [None]
  - HYPOTENSION [None]
  - PYREXIA [None]
